FAERS Safety Report 4700341-4 (Version None)
Quarter: 2005Q2

REPORT INFORMATION
  Report Type: 
  Country: None (occurrence: None)
  Receive Date: 20050627
  Receipt Date: 20050622
  Transmission Date: 20051028
  Serious: Yes (Disabling)
  Sender: FDA-Public Use
  Company Number: DE-MERCK-0506DEU00185

PATIENT
  Age: 52 Year
  Sex: Male

DRUGS (1)
  1. VIOXX [Suspect]
     Indication: PSORIATIC ARTHROPATHY
     Route: 048
     Dates: start: 20020501, end: 20031201

REACTIONS (1)
  - CEREBROVASCULAR ACCIDENT [None]
